FAERS Safety Report 6234995-0 (Version None)
Quarter: 2009Q2

REPORT INFORMATION
  Report Type: 
  Country: None (occurrence: None)
  Receive Date: 20090618
  Receipt Date: 20090604
  Transmission Date: 20091009
  Serious: Yes (Other)
  Sender: FDA-Public Use
  Company Number: IT-MYLANLABS-2009S1009963

PATIENT
  Age: 76 Year
  Sex: Female
  Weight: 56.3 kg

DRUGS (3)
  1. HYDROCHLOROTHIAZIDE [Suspect]
     Indication: HYPERTENSION
  2. MIRTAZAPINE [Suspect]
     Indication: DEPRESSION
  3. TELMISARTAN [Concomitant]

REACTIONS (1)
  - HYPONATRAEMIA [None]
